FAERS Safety Report 5860080-3 (Version None)
Quarter: 2008Q3

REPORT INFORMATION
  Report Type: 
  Country: None (occurrence: None)
  Receive Date: 20080827
  Receipt Date: 20080815
  Transmission Date: 20090109
  Serious: Yes (Other)
  Sender: FDA-Public Use
  Company Number: US-PFIZER INC-2008063783

PATIENT
  Sex: Female

DRUGS (3)
  1. CHANTIX [Suspect]
  2. PERCOCET [Concomitant]
  3. CYMBALTA [Concomitant]

REACTIONS (2)
  - CARPAL TUNNEL SYNDROME [None]
  - THROAT TIGHTNESS [None]
